FAERS Safety Report 15311991 (Version 1)
Quarter: 2018Q3

REPORT INFORMATION
  Report Type: Report from Study
  Country: US (occurrence: US)
  Receive Date: 20180823
  Receipt Date: 20180823
  Transmission Date: 20181010
  Serious: Yes (Hospitalization)
  Sender: FDA-Public Use
  Company Number: US-GILEAD-2018-0358808

PATIENT
  Age: 48 Year
  Sex: Female

DRUGS (1)
  1. RANOLAZINE. [Suspect]
     Active Substance: RANOLAZINE
     Indication: ANGINA PECTORIS
     Dosage: 500 MG, BID
     Route: 048
     Dates: start: 201711, end: 201807

REACTIONS (2)
  - Intentional product use issue [Not Recovered/Not Resolved]
  - Self-injurious ideation [Unknown]

NARRATIVE: CASE EVENT DATE: 201807
